FAERS Safety Report 4802606-4 (Version None)
Quarter: 2005Q4

REPORT INFORMATION
  Report Type: 
  Country: None (occurrence: None)
  Receive Date: 20051014
  Receipt Date: 20050306
  Transmission Date: 20060501
  Serious: Yes (Hospitalization)
  Sender: FDA-Public Use
  Company Number: 2005042092

PATIENT

DRUGS (2)
  1. NEURONTIN [Suspect]
     Indication: NEUROPATHY
     Dosage: 300 MG (100 MG,3 IN 1 D), ORAL
     Route: 048
  2. GABAPENTIN [Suspect]
     Indication: NEUROPATHY
     Dosage: 300 MG (100 MG,3 IN 1 D), ORAL
     Route: 048

REACTIONS (2)
  - ASTHMA [None]
  - PNEUMONIA [None]
